FAERS Safety Report 7287177-8 (Version None)
Quarter: 2010Q4

REPORT INFORMATION
  Report Type: 
  Country: None (occurrence: None)
  Receive Date: 20101222
  Receipt Date: 20101104
  Transmission Date: 20110411
  Serious: Yes (Hospitalization)
  Sender: FDA-Public Use
  Company Number: UTC-002020

PATIENT
  Age: 67 Year
  Sex: Male
  Weight: 116.6 kg

DRUGS (2)
  1. TYVASO [Suspect]
     Dosage: (66 MCG, INHALATION
     Route: 055
     Dates: start: 20100919
  2. DIURETICS [Concomitant]

REACTIONS (1)
  - SYNCOPE [None]
